FAERS Safety Report 16782066 (Version 1)
Quarter: 2019Q3

REPORT INFORMATION
  Report Type: Report from Study
  Country: IT (occurrence: IT)
  Receive Date: 20190906
  Receipt Date: 20190906
  Transmission Date: 20191005
  Serious: Yes (Hospitalization)
  Sender: FDA-Public Use
  Company Number: IT-JNJFOC-20190743748

PATIENT
  Age: 24 Year
  Sex: Female
  Weight: 53.5 kg

DRUGS (1)
  1. USTEKINUMAB [Suspect]
     Active Substance: USTEKINUMAB
     Indication: CROHN^S DISEASE
     Route: 058
     Dates: start: 20181017

REACTIONS (1)
  - Bartholinitis [Recovered/Resolved]

NARRATIVE: CASE EVENT DATE: 20190727
